FAERS Safety Report 8964385 (Version 2)
Quarter: 2013Q1

REPORT INFORMATION
  Report Type: Spontaneous
  Country: US (occurrence: US)
  Receive Date: 20121214
  Receipt Date: 20130107
  Transmission Date: 20140127
  Serious: No
  Sender: FDA-Public Use
  Company Number: US-PFIZER INC-2012312926

PATIENT
  Age: 58 Year
  Sex: Female
  Weight: 50.79 kg

DRUGS (1)
  1. PREMPRO [Suspect]
     Indication: MENOPAUSAL SYMPTOMS
     Dosage: 0.3MG/1.5MG

REACTIONS (7)
  - Dysuria [Unknown]
  - Feeling abnormal [Unknown]
  - Dry skin [Unknown]
  - Headache [Unknown]
  - Dry eye [Unknown]
  - Discomfort [Unknown]
  - Spinal pain [Unknown]
